FAERS Safety Report 8956085 (Version 1)
Quarter: 2012Q4

REPORT INFORMATION
  Report Type: 
  Country: US (occurrence: US)
  Receive Date: 20121210
  Receipt Date: 20121210
  Transmission Date: 20130627
  Serious: Yes (Hospitalization)
  Sender: FDA-Public Use
  Company Number: US-BAYER-2012-126592

PATIENT
  Age: 71 Year
  Sex: Male

DRUGS (7)
  1. BAYER ASPIRIN REGIMEN ADULT LOW STRENGTH [Suspect]
     Dosage: 100 mg, UNK
  2. METFORMIN HCL [Suspect]
     Indication: TYPE II DIABETES MELLITUS
     Dosage: 2000 mg, UNK
  3. GLIPIZIDE [Suspect]
     Indication: TYPE 2 DIABETES MELLITUS
     Dosage: 20 mg, UNK
  4. ACTOS [Suspect]
     Indication: TYPE 2 DIABETES MELLITUS
     Dosage: 45 mg, UNK
  5. PERCOCET [Concomitant]
     Dosage: UNK
     Dates: start: 20110517
  6. OXYGEN [Concomitant]
     Dosage: UNK
     Dates: start: 20110517
  7. PRADAXA [Concomitant]

REACTIONS (2)
  - Gastric ulcer [Recovering/Resolving]
  - Abdominal discomfort [Recovering/Resolving]
